FAERS Safety Report 20900704 (Version 1)
Quarter: 2022Q2

REPORT INFORMATION
  Report Type: Spontaneous
  Country: FR (occurrence: FR)
  Receive Date: 20220601
  Receipt Date: 20220601
  Transmission Date: 20220721
  Serious: Yes (Hospitalization, Other)
  Sender: FDA-Public Use
  Company Number: FR-EMA-DD-20220512-7180171-151555

PATIENT
  Age: 67 Year
  Sex: Male

DRUGS (6)
  1. CARBOPLATIN [Suspect]
     Active Substance: CARBOPLATIN
     Indication: Squamous cell carcinoma of skin
     Dosage: (D1, D8, D15), THERAPY END DATE : ASKED BUT UNKNOWN
     Route: 042
     Dates: start: 20220218
  2. PACLITAXEL [Suspect]
     Active Substance: PACLITAXEL
     Indication: Squamous cell carcinoma of skin
     Dosage: (D1, D8, D15), THERAPY END DATE : ASKED BUT UNKNOWN
     Route: 042
     Dates: start: 20220218
  3. PACLITAXEL [Suspect]
     Active Substance: PACLITAXEL
     Indication: Squamous cell carcinoma of skin
  4. CEMIPLIMAB [Suspect]
     Active Substance: CEMIPLIMAB
     Indication: Squamous cell carcinoma of skin
     Dosage: 350 MG (350 MG,1 IN 3 WK)
     Route: 042
     Dates: start: 20220112, end: 20220128
  5. SERINE/THREONINE-PROTEIN KINASE 19 [Suspect]
     Active Substance: SERINE/THREONINE-PROTEIN KINASE 19
     Indication: Squamous cell carcinoma of skin
     Dosage: 1 X 10^6 PFU/ML,
     Route: 036
     Dates: start: 20211217, end: 20211217
  6. SERINE/THREONINE-PROTEIN KINASE 19 [Suspect]
     Active Substance: SERINE/THREONINE-PROTEIN KINASE 19
     Indication: Squamous cell carcinoma of skin

REACTIONS (1)
  - Pulmonary embolism [Recovered/Resolved]

NARRATIVE: CASE EVENT DATE: 20220307
